FAERS Safety Report 24625501 (Version 1)
Quarter: 2024Q4

REPORT INFORMATION
  Report Type: Spontaneous
  Country: IT (occurrence: IT)
  Receive Date: 20241115
  Receipt Date: 20241115
  Transmission Date: 20250114
  Serious: Yes (Other)
  Sender: AUROBINDO
  Company Number: IT-VELOXIS PHARMACEUTICALS, INC.-2024-VEL-00565

PATIENT
  Age: 38 Year
  Sex: Female

DRUGS (3)
  1. MYCOPHENOLIC ACID [Suspect]
     Active Substance: MYCOPHENOLIC ACID
     Indication: Immunosuppression
     Dosage: UNK
     Route: 065
  2. TACROLIMUS [Suspect]
     Active Substance: TACROLIMUS
     Indication: Immunosuppression
     Dosage: UNK
     Route: 065
  3. THYMOGLOBULIN [Suspect]
     Active Substance: LAPINE T-LYMPHOCYTE IMMUNE GLOBULIN
     Indication: Immunosuppression
     Dosage: 3.2 MILLIGRAM/KILOGRAM
     Route: 065

REACTIONS (5)
  - Aplasia pure red cell [Recovered/Resolved]
  - Microcytic anaemia [Recovered/Resolved]
  - Anaemia megaloblastic [Recovered/Resolved]
  - Lymphocyte count decreased [Recovered/Resolved]
  - Parvovirus B19 infection [Recovered/Resolved]
